FAERS Safety Report 18523725 (Version 1)
Quarter: 2020Q4

REPORT INFORMATION
  Report Type: Report from Study
  Country: US (occurrence: US)
  Receive Date: 20201119
  Receipt Date: 20201119
  Transmission Date: 20210114
  Serious: Yes (Hospitalization)
  Sender: FDA-Public Use
  Company Number: US-BAXTER-2020BAX023323

PATIENT
  Sex: Male
  Weight: 64.2 kg

DRUGS (9)
  1. CYCLOPHOSPHAMIDE FOR INJECTION, USP [Suspect]
     Active Substance: CYCLOPHOSPHAMIDE
     Indication: B PRECURSOR TYPE ACUTE LEUKAEMIA
     Dosage: FIRST TO FOURTH COURSE, TOTAL DOSE IN FOURTH COURSE: 1800 MG
     Route: 065
     Dates: start: 20200812, end: 20200923
  2. RITUXIMAB. [Suspect]
     Active Substance: RITUXIMAB
     Indication: B PRECURSOR TYPE ACUTE LEUKAEMIA
     Dosage: MOAB C2B8 ANTI CD20, CHIMERIC, FIRST TO FOURTH COURSE, TOTAL DOSE IN FOURTH COURSE: 1400 MG
     Route: 065
     Dates: start: 20200812, end: 20200826
  3. THIOGUANINE [Suspect]
     Active Substance: THIOGUANINE
     Indication: B PRECURSOR TYPE ACUTE LEUKAEMIA
     Dosage: FIRST TO FOURTH COURSE, TOTAL DOSE IN FOURTH COURSE: 1560 MG
     Route: 065
     Dates: start: 20200812, end: 20201006
  4. VINCRISTINE SULFATE. [Suspect]
     Active Substance: VINCRISTINE SULFATE
     Indication: B PRECURSOR TYPE ACUTE LEUKAEMIA
     Dosage: FIRST TO FOURTH COURSE, TOTAL DOSE IN FOURTH COURSE: 6 MG
     Route: 065
     Dates: start: 20200812, end: 20200826
  5. CYTARABINE. [Suspect]
     Active Substance: CYTARABINE
     Indication: B PRECURSOR TYPE ACUTE LEUKAEMIA
     Dosage: FIRST TO FOURTH COURSE, TOTAL DOSE IN FOURTH COURSE: 840 MG
     Route: 065
     Dates: start: 20200812, end: 20201004
  6. ONCASPAR [Suspect]
     Active Substance: PEGASPARGASE
     Indication: B PRECURSOR TYPE ACUTE LEUKAEMIA
     Dosage: FIRST TO FOURTH COURSE, TOTAL DOSE IN FOURTH COURSE: 37500 MG
     Route: 065
     Dates: start: 20200812, end: 20201007
  7. DOXIL [Suspect]
     Active Substance: DOXORUBICIN HYDROCHLORIDE
     Indication: B PRECURSOR TYPE ACUTE LEUKAEMIA
     Dosage: FIRST TO FOURTH COURSE, TOTAL DOSE IN FOURTH COURSE: 132 MG
     Route: 065
     Dates: start: 20200812, end: 20200826
  8. METHOTREXATE SODIUM. [Suspect]
     Active Substance: METHOTREXATE SODIUM
     Indication: B PRECURSOR TYPE ACUTE LEUKAEMIA
     Dosage: FIRST TO FOURTH COURSE, TOTAL DOSE IN FOURTH COURSE: 45 MG
     Route: 065
     Dates: start: 20200812, end: 20200923
  9. DEXAMETHASONE. [Suspect]
     Active Substance: DEXAMETHASONE
     Indication: B PRECURSOR TYPE ACUTE LEUKAEMIA
     Dosage: FIRST TO FOURTH COURSE, TOTAL DOSE IN FOURTH COURSE: 252 MG
     Route: 065
     Dates: start: 20200812, end: 20200826

REACTIONS (1)
  - Febrile neutropenia [Unknown]

NARRATIVE: CASE EVENT DATE: 20201001
